FAERS Safety Report 14225904 (Version 1)
Quarter: 2017Q4

REPORT INFORMATION
  Report Type: Spontaneous
  Country: US (occurrence: US)
  Receive Date: 20171127
  Receipt Date: 20171127
  Transmission Date: 20180321
  Serious: Yes (Other)
  Sender: FDA-Public Use
  Company Number: US-TEVA-2017-US-827032

PATIENT
  Sex: Male

DRUGS (1)
  1. AZITHROMYCIN ANHYDROUS. [Suspect]
     Active Substance: AZITHROMYCIN ANHYDROUS
     Indication: ADVERSE DRUG REACTION
     Dates: start: 20160227, end: 20160305

REACTIONS (7)
  - Renal failure [Unknown]
  - Ear haemorrhage [Unknown]
  - Hepatic function abnormal [Unknown]
  - Lung disorder [Unknown]
  - Trichoglossia [Unknown]
  - Hypersensitivity [Unknown]
  - Rash [Unknown]

NARRATIVE: CASE EVENT DATE: 20160228
